FAERS Safety Report 13144864 (Version 1)
Quarter: 2017Q1

REPORT INFORMATION
  Report Type: Spontaneous
  Country: JP (occurrence: JP)
  Receive Date: 20170124
  Receipt Date: 20170124
  Transmission Date: 20170428
  Serious: Yes (Hospitalization, Other)
  Sender: FDA-Public Use
  Company Number: JP-MUNDIPHARMA DS AND PHARMACOVIGILANCE-GBR-2017-0043062

PATIENT
  Age: 84 Year
  Sex: Female

DRUGS (5)
  1. LENDORMIN [Concomitant]
     Active Substance: BROTIZOLAM
     Route: 048
  2. OPALMON [Concomitant]
     Active Substance: LIMAPROST
     Route: 048
  3. PRIMPERAN [Concomitant]
     Active Substance: METOCLOPRAMIDE HYDROCHLORIDE
     Indication: PROPHYLAXIS OF NAUSEA AND VOMITING
     Dosage: UNK
     Dates: start: 20161224
  4. NORSPAN [Suspect]
     Active Substance: BUPRENORPHINE
     Indication: ARTHRALGIA
     Dosage: 5 MCG, Q1H
     Route: 062
     Dates: start: 20161224, end: 20161226
  5. BELSOMRA [Concomitant]
     Active Substance: SUVOREXANT
     Dosage: 20 MG, DAILY
     Route: 048

REACTIONS (3)
  - Vomiting [Recovering/Resolving]
  - Nausea [Recovering/Resolving]
  - Cholangitis acute [Recovering/Resolving]

NARRATIVE: CASE EVENT DATE: 20161226
